FAERS Safety Report 5487944-7 (Version None)
Quarter: 2007Q3

REPORT INFORMATION
  Report Type: 
  Country: None (occurrence: None)
  Receive Date: 20070925
  Receipt Date: 20070626
  Transmission Date: 20080115
  Serious: No
  Sender: FDA-Public Use
  Company Number: 2007US001504

PATIENT
  Sex: Male

DRUGS (2)
  1. VESICARE [Suspect]
     Indication: DRUG USE FOR UNKNOWN INDICATION
     Dosage: 5 MG, ORAL
     Route: 048
  2. TETRACYCLINE (TETRACYLCINE HYDROCHLORIDE) [Concomitant]

REACTIONS (4)
  - FATIGUE [None]
  - FLATULENCE [None]
  - PRURITUS [None]
  - URINARY HESITATION [None]
